FAERS Safety Report 12240222 (Version 1)
Quarter: 2016Q2

REPORT INFORMATION
  Report Type: Spontaneous
  Country: GB (occurrence: GB)
  Receive Date: 20160405
  Receipt Date: 20160405
  Transmission Date: 20160815
  Serious: Yes (Other)
  Sender: FDA-Public Use
  Company Number: GB-WATSON-2016-06689

PATIENT
  Age: 21 Year
  Sex: Female
  Weight: 55 kg

DRUGS (2)
  1. LEVONELLE /00318901/ [Suspect]
     Active Substance: LEVONORGESTREL
     Indication: POST COITAL CONTRACEPTION
     Dosage: 1 DF, DAILY
     Route: 065
     Dates: start: 20160220, end: 20160220
  2. METRONIDAZOLE (UNKNOWN) [Suspect]
     Active Substance: METRONIDAZOLE
     Indication: BACTERIAL VAGINOSIS
     Dosage: 400 MG, UNKNOWN
     Route: 048
     Dates: start: 20160218

REACTIONS (5)
  - Metrorrhagia [Recovered/Resolved]
  - Cystitis [Recovered/Resolved]
  - Dysmenorrhoea [Recovered/Resolved]
  - Inflammation [Recovered/Resolved with Sequelae]
  - Back pain [Recovered/Resolved with Sequelae]

NARRATIVE: CASE EVENT DATE: 20160220
